FAERS Safety Report 9308247 (Version 1)
Quarter: 2013Q2

REPORT INFORMATION
  Report Type: Spontaneous
  Country: NO (occurrence: NO)
  Receive Date: 20130524
  Receipt Date: 20130524
  Transmission Date: 20140414
  Serious: Yes (Hospitalization)
  Sender: FDA-Public Use
  Company Number: NO-GE HEALTHCARE MEDICAL DIAGNOSTICS-OMPQ-PR-1303S-0381

PATIENT
  Age: 60 Year
  Sex: Female

DRUGS (8)
  1. OMNIPAQUE [Suspect]
     Indication: OVARIAN CYST
     Route: 042
     Dates: start: 20130319, end: 20130319
  2. OMNIPAQUE [Suspect]
     Indication: DIAGNOSTIC PROCEDURE
     Route: 042
     Dates: start: 20130319, end: 20130319
  3. SOLUCORTEF [Concomitant]
  4. PEDTIDIN [Concomitant]
  5. ATROPIN [Concomitant]
  6. ADRENALIN [Concomitant]
  7. DESKLORFENIRAMIN [Concomitant]
  8. FENYLEFRIN [Concomitant]

REACTIONS (2)
  - Anaphylactic reaction [Recovered/Resolved]
  - Accelerated idioventricular rhythm [Recovered/Resolved]
